FAERS Safety Report 24370090 (Version 3)
Quarter: 2024Q4

REPORT INFORMATION
  Report Type: Spontaneous
  Country: FR (occurrence: FR)
  Receive Date: 20240927
  Receipt Date: 20241225
  Transmission Date: 20250114
  Serious: Yes (Hospitalization)
  Sender: ABBVIE
  Company Number: None

PATIENT
  Age: 10 Year
  Sex: Female
  Weight: 28 kg

DRUGS (2)
  1. HUMIRA [Suspect]
     Active Substance: ADALIMUMAB
     Indication: Crohn^s disease
     Dosage: (MAMMIFERE/HAMSTER/CHO)
     Route: 058
     Dates: start: 20240506, end: 20240914
  2. HUMIRA [Suspect]
     Active Substance: ADALIMUMAB
     Dosage: START DATE: 2024
     Route: 058

REACTIONS (2)
  - Pancreatitis acute [Recovering/Resolving]
  - Primary mediastinal large B-cell lymphoma [Not Recovered/Not Resolved]

NARRATIVE: CASE EVENT DATE: 20240807
